FAERS Safety Report 13668992 (Version 2)
Quarter: 2017Q3

REPORT INFORMATION
  Report Type: Report from Study
  Country: CN (occurrence: CN)
  Receive Date: 20170620
  Receipt Date: 20170714
  Transmission Date: 20171127
  Serious: Yes (Death)
  Sender: FDA-Public Use
  Company Number: CN-ROCHE-1922316

PATIENT
  Age: 50 Year
  Sex: Female
  Weight: 62.3 kg

DRUGS (16)
  1. COMPOUND TRIVITAMIN B [Concomitant]
     Route: 065
     Dates: start: 20170410, end: 20170412
  2. TRASTUZUMAB. [Suspect]
     Active Substance: TRASTUZUMAB
     Indication: HER-2 POSITIVE BREAST CANCER
     Dosage: LOADING DOSE: 8 MG/KG (AS PER PROTOCOL)
     Route: 042
     Dates: start: 20170410
  3. DEXAMETHASONE. [Concomitant]
     Active Substance: DEXAMETHASONE
     Indication: HYPERSENSITIVITY
     Route: 065
     Dates: start: 20170410, end: 20170410
  4. GLUTATHIONE [Concomitant]
     Active Substance: GLUTATHIONE
     Route: 065
     Dates: start: 20170415, end: 20170415
  5. PANTOPRAZOLE SODIUM. [Concomitant]
     Active Substance: PANTOPRAZOLE SODIUM
     Indication: PROPHYLAXIS
     Route: 065
     Dates: start: 20170410, end: 20170412
  6. FUROSEMIDE. [Concomitant]
     Active Substance: FUROSEMIDE
     Indication: POLYURIA
     Route: 065
     Dates: start: 20170410, end: 20170410
  7. MAGNESIUM ISOBUTYRATE [Concomitant]
     Route: 065
     Dates: start: 20170415, end: 20170415
  8. PERTUZUMAB. [Suspect]
     Active Substance: PERTUZUMAB
     Indication: HER-2 POSITIVE BREAST CANCER
     Dosage: LOADING DOSE
     Route: 042
     Dates: start: 20170410
  9. CIMETIDINE [Concomitant]
     Active Substance: CIMETIDINE
     Indication: HYPERSENSITIVITY
     Route: 065
     Dates: start: 20170410, end: 20170410
  10. PROMETHAZINE HYDROCHLORIDE. [Concomitant]
     Active Substance: PROMETHAZINE HYDROCHLORIDE
     Indication: HYPERSENSITIVITY
     Route: 065
     Dates: start: 20170410, end: 20170410
  11. BICYCLOL [Concomitant]
     Active Substance: BICYCLOL
     Route: 065
     Dates: start: 20170415, end: 20170415
  12. DI-ISOPROPYLAMINE DICHLOROACETATE [Concomitant]
     Route: 065
     Dates: start: 20170410, end: 20170412
  13. DOCETAXEL. [Suspect]
     Active Substance: DOCETAXEL
     Indication: HER-2 POSITIVE BREAST CANCER
     Dosage: 75 MG/M2 (AS PER PROTOCOL)
     Route: 042
     Dates: start: 20170410
  14. TROPISETRON HYDROCHLORIDE [Concomitant]
     Active Substance: TROPISETRON HYDROCHLORIDE
     Indication: VOMITING
     Route: 065
     Dates: start: 20170410, end: 20170412
  15. DEXAMETHASONE SODIUM PHOSPHATE. [Concomitant]
     Active Substance: DEXAMETHASONE SODIUM PHOSPHATE
     Indication: VOMITING
     Route: 065
     Dates: start: 20170410, end: 20170412
  16. FUROSEMIDE. [Concomitant]
     Active Substance: FUROSEMIDE
     Route: 065
     Dates: start: 20170412, end: 20170412

REACTIONS (1)
  - Sudden death [Fatal]

NARRATIVE: CASE EVENT DATE: 20170415
